FAERS Safety Report 8358254-5 (Version None)
Quarter: 2012Q2

REPORT INFORMATION
  Report Type: 
  Country: None (occurrence: None)
  Receive Date: 20120514
  Receipt Date: 20111213
  Transmission Date: 20120825
  Serious: Yes (Hospitalization)
  Sender: FDA-Public Use
  Company Number: DE-GLAXOSMITHKLINE-Z0003279A

PATIENT
  Sex: Female
  Weight: 85 kg

DRUGS (3)
  1. VALPROATE SODIUM [Concomitant]
  2. PAZOPANIB [Suspect]
     Indication: OVARIAN CANCER
     Dosage: 800MG PER DAY
     Route: 048
     Dates: start: 20100208
  3. LAMICTAL [Concomitant]

REACTIONS (1)
  - FEMALE GENITAL TRACT FISTULA [None]
